FAERS Safety Report 21985867 (Version 1)
Quarter: 2023Q1

REPORT INFORMATION
  Report Type: Spontaneous
  Country: US (occurrence: None)
  Receive Date: 20230211
  Receipt Date: 20230211
  Transmission Date: 20230418
  Serious: Yes (Disabling)
  Sender: FDA-Public Use
  Company Number: None

PATIENT
  Age: 48 Year
  Sex: Female
  Weight: 101.25 kg

DRUGS (4)
  1. BUPROPION XL [Suspect]
     Active Substance: BUPROPION HYDROCHLORIDE
     Indication: Depression
     Dosage: OTHER QUANTITY : 1 TABLET(S);?FREQUENCY : DAILY;?
     Route: 048
     Dates: start: 20221023
  2. VALTREX [Concomitant]
     Active Substance: VALACYCLOVIR HYDROCHLORIDE
  3. levothyroxizine [Concomitant]
  4. wellbutr8n [Concomitant]

REACTIONS (6)
  - Product substitution issue [None]
  - Suicidal ideation [None]
  - Headache [None]
  - Mood swings [None]
  - Crying [None]
  - Drug effect less than expected [None]

NARRATIVE: CASE EVENT DATE: 20221023
